FAERS Safety Report 5101596-7 (Version None)
Quarter: 2006Q3

REPORT INFORMATION
  Report Type: 
  Country: None (occurrence: None)
  Receive Date: 20060731
  Receipt Date: 20060623
  Transmission Date: 20061208
  Serious: No
  Sender: FDA-Public Use
  Company Number: 2006PV016259

PATIENT
  Age: 51 Year
  Sex: Female
  Weight: 88.905 kg

DRUGS (4)
  1. BYETTA [Suspect]
     Indication: DIABETES MELLITUS NON-INSULIN-DEPENDENT
     Dosage: SEE IMAGE
     Route: 058
     Dates: start: 20060508, end: 20060605
  2. BYETTA [Suspect]
     Indication: DIABETES MELLITUS NON-INSULIN-DEPENDENT
     Dosage: SEE IMAGE
     Route: 058
     Dates: start: 20060605
  3. LISINOPRIL [Suspect]
     Indication: HYPERTENSION
     Dates: start: 20060508, end: 20060601
  4. GLUCOPHAGE [Concomitant]

REACTIONS (4)
  - ALOPECIA [None]
  - DRUG INEFFECTIVE FOR UNAPPROVED INDICATION [None]
  - JOINT SWELLING [None]
  - WEIGHT DECREASED [None]
